FAERS Safety Report 4998002-X (Version None)
Quarter: 2006Q2

REPORT INFORMATION
  Report Type: 
  Country: None (occurrence: None)
  Receive Date: 20060508
  Receipt Date: 20060421
  Transmission Date: 20061013
  Serious: Yes (Disabling)
  Sender: FDA-Public Use
  Company Number: 34571

PATIENT
  Sex: Female

DRUGS (2)
  1. ECONOPRED PLUS [Suspect]
     Indication: PROPHYLAXIS
     Dates: start: 20060301
  2. VOLTAREN [Suspect]
     Indication: PROPHYLAXIS
     Dates: start: 20060301

REACTIONS (3)
  - EYE INFECTION STAPHYLOCOCCAL [None]
  - POSTOPERATIVE INFECTION [None]
  - VISUAL ACUITY REDUCED [None]
